FAERS Safety Report 4880307-4 (Version None)
Quarter: 2006Q1

REPORT INFORMATION
  Report Type: 
  Country: None (occurrence: None)
  Receive Date: 20060113
  Receipt Date: 20051223
  Transmission Date: 20060701
  Serious: Yes (Death, Hospitalization)
  Sender: FDA-Public Use
  Company Number: CZ-ROCHE-430096

PATIENT
  Age: 65 Year
  Sex: Male
  Weight: 85 kg

DRUGS (3)
  1. CAPECITABINE [Suspect]
     Route: 065
     Dates: start: 20050930
  2. AVASTIN [Suspect]
     Route: 065
     Dates: start: 20050930
  3. IRINOTECAN [Suspect]
     Route: 065
     Dates: start: 20050930

REACTIONS (2)
  - BRONCHOPNEUMONIA [None]
  - PULMONARY OEDEMA [None]
